FAERS Safety Report 16178879 (Version 5)
Quarter: 2019Q2

REPORT INFORMATION
  Report Type: Report from Study
  Country: None (occurrence: CH)
  Receive Date: 20190410
  Receipt Date: 20190502
  Transmission Date: 20190711
  Serious: Yes (Hospitalization)
  Sender: FDA-Public Use
  Company Number: CH-ABBVIE-18S-151-2532367-00

PATIENT
  Age: 78 Year
  Sex: Male

DRUGS (8)
  1. DUODOPA [Suspect]
     Active Substance: CARBIDOPA\LEVODOPA
     Route: 050
     Dates: start: 201812
  2. DUODOPA [Suspect]
     Active Substance: CARBIDOPA\LEVODOPA
     Dosage: MD 7ML; CONTINUOUS RATE-DAY 1.7ML/H, ED 0.7ML?16H THERAPY
     Route: 050
     Dates: start: 20180918, end: 20180920
  3. DUODOPA [Suspect]
     Active Substance: CARBIDOPA\LEVODOPA
     Dosage: MD 7ML; CR DAY 2ML/H, ED 1ML?16H THERAPY
     Route: 050
     Dates: start: 20180920, end: 201810
  4. DUODOPA [Suspect]
     Active Substance: CARBIDOPA\LEVODOPA
     Dosage: MD 7ML; CR-DAY 1.9-2.0ML/H, ED 1ML 16H THERAPY
     Route: 050
     Dates: start: 20181018, end: 2018
  5. DUODOPA [Suspect]
     Active Substance: CARBIDOPA\LEVODOPA
     Dosage: MD 7ML; CD 2.0ML/H, ED1ML
     Route: 050
     Dates: start: 20180920, end: 20181203
  6. DUODOPA [Suspect]
     Active Substance: CARBIDOPA\LEVODOPA
     Dosage: MD 7ML; CRD 2.2ML/H, ED 1ML BLOCKING TIME 1H LL0
     Route: 050
     Dates: start: 20181203, end: 20181213
  7. DUODOPA [Suspect]
     Active Substance: CARBIDOPA\LEVODOPA
     Indication: PARKINSON^S DISEASE
     Route: 050
     Dates: start: 20180911, end: 20180918
  8. DUODOPA [Suspect]
     Active Substance: CARBIDOPA\LEVODOPA
     Dosage: MD 7ML; CR-DAY 1.8ML/H, ED1ML?16H THERAPY
     Route: 050
     Dates: start: 201810, end: 20181018

REACTIONS (14)
  - Hospitalisation [Recovered/Resolved]
  - On and off phenomenon [Recovered/Resolved]
  - Frustration tolerance decreased [Recovered/Resolved]
  - Irritability [Recovered/Resolved]
  - Device issue [Recovered/Resolved]
  - Patient dissatisfaction with treatment [Recovered/Resolved]
  - Stoma site hypergranulation [Not Recovered/Not Resolved]
  - Anger [Recovered/Resolved]
  - Discomfort [Recovered/Resolved]
  - Feeling abnormal [Recovered/Resolved]
  - Dyskinesia [Recovered/Resolved]
  - Stoma site discharge [Not Recovered/Not Resolved]
  - Refusal of treatment by patient [Recovered/Resolved]
  - Abnormal behaviour [Recovered/Resolved]

NARRATIVE: CASE EVENT DATE: 20181016
